FAERS Safety Report 8426446-2 (Version None)
Quarter: 2012Q2

REPORT INFORMATION
  Report Type: 
  Country: None (occurrence: None)
  Receive Date: 20120611
  Receipt Date: 20120606
  Transmission Date: 20120825
  Serious: Yes (Other)
  Sender: FDA-Public Use
  Company Number: US-PFIZER INC-2012137350

PATIENT

DRUGS (1)
  1. VIAGRA [Suspect]

REACTIONS (3)
  - DEAFNESS NEUROSENSORY [None]
  - SUDDEN HEARING LOSS [None]
  - DEAFNESS UNILATERAL [None]
